FAERS Safety Report 20684406 (Version 1)
Quarter: 2022Q2

REPORT INFORMATION
  Report Type: Spontaneous
  Country: US (occurrence: US)
  Receive Date: 20220407
  Receipt Date: 20220407
  Transmission Date: 20220721
  Serious: Yes (Death, Hospitalization, Other)
  Sender: FDA-Public Use
  Company Number: US-AMGEN-USASP2022056336

PATIENT
  Age: 54 Year
  Sex: Male

DRUGS (6)
  1. CINACALCET HYDROCHLORIDE [Suspect]
     Active Substance: CINACALCET HYDROCHLORIDE
     Indication: Calciphylaxis
     Route: 065
  2. CINACALCET HYDROCHLORIDE [Suspect]
     Active Substance: CINACALCET HYDROCHLORIDE
     Indication: Off label use
  3. SODIUM THIOSULFATE [Concomitant]
     Active Substance: SODIUM THIOSULFATE
  4. SEVELAMER [Concomitant]
     Active Substance: SEVELAMER
  5. CALCIUM [Concomitant]
     Active Substance: CALCIUM
  6. APIXABAN [Concomitant]
     Active Substance: APIXABAN

REACTIONS (5)
  - Death [Fatal]
  - Calciphylaxis [Unknown]
  - Wound infection [Unknown]
  - Sepsis [Unknown]
  - Off label use [Unknown]
